FAERS Safety Report 12444723 (Version 2)
Quarter: 2016Q2

REPORT INFORMATION
  Report Type: Report from Study
  Country: US (occurrence: US)
  Receive Date: 20160607
  Receipt Date: 20160613
  Transmission Date: 20160815
  Serious: Yes (Hospitalization)
  Sender: FDA-Public Use
  Company Number: US-ACTELION-A-NJ2016-136744

PATIENT
  Age: 75 Year
  Sex: Female

DRUGS (1)
  1. VELETRI [Suspect]
     Active Substance: EPOPROSTENOL
     Indication: PULMONARY HYPERTENSION
     Dosage: 6 NG/KG, PER MIN
     Route: 042
     Dates: start: 20160518

REACTIONS (8)
  - Blood glucose increased [Unknown]
  - Tremor [Unknown]
  - Malaise [Unknown]
  - Pain [Unknown]
  - Pain in jaw [Unknown]
  - Bradycardia [Unknown]
  - Asthenia [Unknown]
  - Heart rate decreased [Unknown]
